FAERS Safety Report 10598462 (Version 1)
Quarter: 2014Q4

REPORT INFORMATION
  Report Type: Spontaneous
  Country: GB (occurrence: GB)
  Receive Date: 20141121
  Receipt Date: 20141121
  Transmission Date: 20150529
  Serious: Yes (Other)
  Sender: FDA-Public Use
  Company Number: GB-WATSON-2014-24775

PATIENT
  Age: 50 Year
  Sex: Female
  Weight: 82 kg

DRUGS (4)
  1. LEVOTHYROXINE (UNKNOWN) [Suspect]
     Active Substance: LEVOTHYROXINE
     Indication: PRODUCT USED FOR UNKNOWN INDICATION
     Dosage: 75 ?G, UNKNOWN; 50 AND 25
     Route: 048
     Dates: start: 2000
  2. OESTROGEN(DIETHYLSTILBESTROL [Suspect]
     Active Substance: DIETHYLSTILBESTROL
     Indication: PRODUCT USED FOR UNKNOWN INDICATION
     Dosage: UNK
     Route: 065
  3. SERTRALINE HYDROCHLORIDE (UNKNOWN) [Suspect]
     Active Substance: SERTRALINE HYDROCHLORIDE
     Indication: DEPRESSION
     Dosage: 50 MG, UNKNOWN
     Route: 048
     Dates: start: 2013
  4. PROGESTERONE. [Suspect]
     Active Substance: PROGESTERONE
     Indication: PRODUCT USED FOR UNKNOWN INDICATION
     Dosage: UNK; PROGESTERONE COIL
     Route: 065

REACTIONS (1)
  - Hyperhidrosis [Not Recovered/Not Resolved]

NARRATIVE: CASE EVENT DATE: 2000
